FAERS Safety Report 19088645 (Version 2)
Quarter: 2021Q2

REPORT INFORMATION
  Report Type: Spontaneous
  Country: PL (occurrence: PL)
  Receive Date: 20210402
  Receipt Date: 20210408
  Transmission Date: 20210717
  Serious: Yes (Other)
  Sender: FDA-Public Use
  Company Number: PL-BAXTER-2021BAX006641

PATIENT
  Age: 58 Year
  Sex: Female

DRUGS (1)
  1. DOXIL [Suspect]
     Active Substance: DOXORUBICIN HYDROCHLORIDE
     Indication: INVASIVE DUCTAL BREAST CARCINOMA
     Dosage: 2 CYCLE; CYCLICAL
     Route: 065
     Dates: start: 201806

REACTIONS (1)
  - Intertrigo [Recovered/Resolved]

NARRATIVE: CASE EVENT DATE: 2018
